FAERS Safety Report 5645553-0 (Version None)
Quarter: 2008Q1

REPORT INFORMATION
  Report Type: 
  Country: None (occurrence: None)
  Receive Date: 20080229
  Receipt Date: 20070706
  Transmission Date: 20080703
  Serious: Yes (Other)
  Sender: FDA-Public Use
  Company Number: IT-RANBAXY-2007RR-08416

PATIENT

DRUGS (4)
  1. DICLOFENAC SODIUM [Suspect]
     Dosage: 75 MG, QD
  2. ACETAMINOPHEN [Suspect]
     Dosage: UNK G, QD
  3. ACETAMINOPHEN [Suspect]
     Dosage: UNK G, QD
  4. NIMESULIDE [Suspect]
     Dosage: 100 MG, QD

REACTIONS (11)
  - BRADYCARDIA NEONATAL [None]
  - CYANOSIS NEONATAL [None]
  - DRUG EXPOSURE DURING PREGNANCY [None]
  - DUCTUS ARTERIOSUS STENOSIS FOETAL [None]
  - NEONATAL DISORDER [None]
  - NEONATAL RESPIRATORY ACIDOSIS [None]
  - NEONATAL RESPIRATORY DISTRESS SYNDROME [None]
  - OLIGOHYDRAMNIOS [None]
  - POLYURIA [None]
  - PREMATURE BABY [None]
  - RENAL FAILURE NEONATAL [None]
